FAERS Safety Report 5691879-4 (Version None)
Quarter: 2008Q1

REPORT INFORMATION
  Report Type: 
  Country: None (occurrence: None)
  Receive Date: 20080331
  Receipt Date: 20080319
  Transmission Date: 20080703
  Serious: Yes (Other)
  Sender: FDA-Public Use
  Company Number: 100#03#2007-03943

PATIENT
  Age: 81 Year
  Sex: Female

DRUGS (8)
  1. ERYTHROMYCIN STEARATE [Suspect]
     Indication: LOWER RESPIRATORY TRACT INFECTION
     Dosage: 250 MG FOUR TIMES A DAY ORAL
     Route: 048
     Dates: start: 20070723, end: 20070723
  2. CYCLIZINE (CYCLIZINE) [Concomitant]
  3. DOXAZOSIN (DOXAZOSIN) [Concomitant]
  4. EXEMESTANE [Concomitant]
  5. FUROSEMIDE [Concomitant]
  6. LOSARTAN POTASSIUM [Concomitant]
  7. OMEPRAZOLE [Concomitant]
  8. TRAMADOL HCL [Concomitant]

REACTIONS (2)
  - HALLUCINATION [None]
  - SKIN DISCOLOURATION [None]
